FAERS Safety Report 10469123 (Version 1)
Quarter: 2014Q3

REPORT INFORMATION
  Report Type: Spontaneous
  Country: US (occurrence: None)
  Receive Date: 20140922
  Receipt Date: 20140922
  Transmission Date: 20150326
  Serious: Yes (Disabling)
  Sender: FDA-Public Use
  Company Number: None

PATIENT
  Age: 36 Year
  Sex: Female
  Weight: 57.15 kg

DRUGS (1)
  1. GAMMAGARD [Suspect]
     Active Substance: HUMAN IMMUNOGLOBULIN G
     Indication: MYASTHENIA GRAVIS
     Dosage: 50GRAMS?2 X A MONTH?IVIG PORT

REACTIONS (7)
  - Asthenia [None]
  - Abdominal pain upper [None]
  - Headache [None]
  - Diarrhoea [None]
  - Pyrexia [None]
  - Chills [None]
  - Muscle disorder [None]

NARRATIVE: CASE EVENT DATE: 20140911
